FAERS Safety Report 4546964-7 (Version None)
Quarter: 2005Q1

REPORT INFORMATION
  Report Type: 
  Country: None (occurrence: None)
  Receive Date: 20050105
  Receipt Date: 20041224
  Transmission Date: 20050727
  Serious: No
  Sender: FDA-Public Use
  Company Number: 02100-JPN-04-0356

PATIENT
  Age: 84 Year
  Sex: Male

DRUGS (3)
  1. CILOSTAZOL [Suspect]
     Indication: ANGINA PECTORIS
     Dosage: 100 MG
     Route: 048
     Dates: start: 20030207
  2. WARFARIN POTASSIUM [Suspect]
     Indication: ANGINA PECTORIS
     Dosage: 1.5 MG
     Route: 048
     Dates: start: 20030207
  3. FUROSEMIDE [Suspect]
     Indication: ANGINA PECTORIS
     Dosage: 40 MG
     Route: 048
     Dates: start: 20030207

REACTIONS (1)
  - DERMATITIS EXFOLIATIVE [None]
